FAERS Safety Report 6817538-X (Version None)
Quarter: 2010Q3

REPORT INFORMATION
  Report Type: 
  Country: None (occurrence: None)
  Receive Date: 20100706
  Receipt Date: 20100630
  Transmission Date: 20110219
  Serious: Yes (Other)
  Sender: FDA-Public Use
  Company Number: JP-JNJFOC-20100700066

PATIENT
  Age: 68 Year
  Sex: Male

DRUGS (4)
  1. ITRIZOLE [Suspect]
     Indication: PRODUCT USED FOR UNKNOWN INDICATION
     Route: 048
  2. PREDONINE [Suspect]
     Indication: MULTIPLE MYELOMA
     Route: 048
  3. ALKERAN [Concomitant]
     Indication: MULTIPLE MYELOMA
     Route: 048
  4. COTRIM [Concomitant]
     Indication: PNEUMOCYSTIS JIROVECI PNEUMONIA
     Route: 048

REACTIONS (1)
  - HERPES ZOSTER [None]
